FAERS Safety Report 13199357 (Version 5)
Quarter: 2018Q1

REPORT INFORMATION
  Report Type: Spontaneous
  Country: US (occurrence: US)
  Receive Date: 20170208
  Receipt Date: 20180226
  Transmission Date: 20180508
  Serious: Yes (Hospitalization, Other)
  Sender: FDA-Public Use
  Company Number: US-PFIZER INC-2017054490

PATIENT
  Age: 69 Year
  Sex: Female

DRUGS (10)
  1. SPIRONOLACTON [Concomitant]
     Active Substance: SPIRONOLACTONE
     Dosage: 25 MG, 1X/DAY
     Route: 048
  2. ADVAIR HFA [Concomitant]
     Active Substance: FLUTICASONE PROPIONATE\SALMETEROL XINAFOATE
     Dosage: UNK, (250 MCG-50 MCG/DOSE POWDER FOR INHALATION))
  3. PROAIR RESPICLICK [Concomitant]
     Active Substance: ALBUTEROL SULFATE
     Dosage: 180 UG, AS NEEDED [INHALE 2 PUFF BY INHALATION ROUTE EVERY 4 - 6 HOURS AS NEEDED]
     Route: 055
  4. CEPHALEXIN. [Concomitant]
     Active Substance: CEPHALEXIN
     Dosage: 500 MG, 3X/DAY [EVERY 8 HOURS]
     Route: 048
  5. ALENDRONATE [Concomitant]
     Active Substance: ALENDRONATE SODIUM
     Dosage: 70 MG, WEEKLY [EVERY WEEK IN THE MORNING, AT LEAST 30 MIN BEFORE FIRST FOOD BEVERAGE, OR MEDICATION]
     Route: 048
  6. LISINOPRIL. [Concomitant]
     Active Substance: LISINOPRIL
     Dosage: 5 MG, 1X/DAY
     Route: 048
  7. LYRICA [Suspect]
     Active Substance: PREGABALIN
     Indication: FIBROMYALGIA
     Dosage: 150 MG, 2X/DAY
  8. VITAMIN C [Concomitant]
     Active Substance: ASCORBIC ACID
     Dosage: UNK
  9. VITAMIN D3 [Concomitant]
     Active Substance: CHOLECALCIFEROL
     Dosage: UNK
  10. ALBUTEROL. [Concomitant]
     Active Substance: ALBUTEROL
     Dosage: UNK UNK, AS NEEDED [0.083% (25 X 3ML VIALS); DIRECTIONS: USE ONE (1) VIAL VIA NEBULIZER EVERY 6 HOUR

REACTIONS (8)
  - Influenza [Unknown]
  - Asthenia [Unknown]
  - Bronchitis [Unknown]
  - Malaise [Unknown]
  - Disease recurrence [Not Recovered/Not Resolved]
  - Foot fracture [Unknown]
  - Muscle spasms [Not Recovered/Not Resolved]
  - Decreased appetite [Unknown]
